FAERS Safety Report 23829751 (Version 1)
Quarter: 2024Q2

REPORT INFORMATION
  Report Type: Spontaneous
  Country: US (occurrence: US)
  Receive Date: 20240508
  Receipt Date: 20240508
  Transmission Date: 20240717
  Serious: No
  Sender: FDA-Public Use
  Company Number: US-HALEON-2173299

PATIENT

DRUGS (1)
  1. SENSODYNE SENSITIVITY AND GUM WHITENING [Suspect]
     Active Substance: STANNOUS FLUORIDE
     Indication: Tooth whitening

REACTIONS (1)
  - Toothache [Unknown]
